FAERS Safety Report 23663113 (Version 1)
Quarter: 2024Q1

REPORT INFORMATION
  Report Type: Spontaneous
  Country: US (occurrence: US)
  Receive Date: 20240322
  Receipt Date: 20240322
  Transmission Date: 20240410
  Serious: Yes (Other)
  Sender: FDA-Public Use
  Company Number: US-PFIZER INC-PV202400038033

PATIENT
  Age: 34 Year
  Sex: Female

DRUGS (4)
  1. CABERGOLINE [Suspect]
     Active Substance: CABERGOLINE
     Indication: Hyperprolactinaemia
     Dosage: UNK, INTERMITTENTLY FOR 8 YEARS
  2. CABERGOLINE [Suspect]
     Active Substance: CABERGOLINE
     Indication: Prolactin-producing pituitary tumour
     Dosage: 0.5 MG, 2X/WEEK
  3. CABERGOLINE [Suspect]
     Active Substance: CABERGOLINE
     Dosage: 0.75 MG, 2X/WEEK
  4. HYDROCORTISONE [Concomitant]
     Active Substance: HYDROCORTISONE
     Indication: Adrenal insufficiency
     Dosage: HYDROCORTISONE REPLACEMENT FOR 3 MONTHS

REACTIONS (3)
  - Brain herniation [Recovering/Resolving]
  - Encephalocele [Recovering/Resolving]
  - Meningeal disorder [Recovering/Resolving]
